FAERS Safety Report 7211560-X (Version None)
Quarter: 2011Q1

REPORT INFORMATION
  Report Type: 
  Country: None (occurrence: None)
  Receive Date: 20110105
  Receipt Date: 20101216
  Transmission Date: 20110831
  Serious: No
  Sender: FDA-Public Use
  Company Number: US-B.I. PHARMACEUTICALS,INC./RIDGEFIELD-2010-BP-14877BP

PATIENT
  Age: 87 Year
  Sex: Male

DRUGS (3)
  1. PRADAXA [Suspect]
     Indication: ATRIAL FIBRILLATION
     Dosage: 300 MG
     Route: 048
     Dates: start: 20101120
  2. TRAMADOL HCL [Concomitant]
     Indication: PAIN
     Route: 048
  3. CLONAZEPAM [Concomitant]
     Indication: RESTLESS LEGS SYNDROME
     Route: 048

REACTIONS (1)
  - YELLOW SKIN [None]
